FAERS Safety Report 22039246 (Version 3)
Quarter: 2023Q2

REPORT INFORMATION
  Report Type: Spontaneous
  Country: NZ (occurrence: NZ)
  Receive Date: 20230227
  Receipt Date: 20230510
  Transmission Date: 20230722
  Serious: Yes (Hospitalization, Other)
  Sender: FDA-Public Use
  Company Number: NZ-MYLANLABS-2023M1019933

PATIENT
  Age: 27 Year
  Sex: Male

DRUGS (4)
  1. CLOZARIL [Suspect]
     Active Substance: CLOZAPINE
     Indication: Schizophrenia
     Dosage: 400 MILLIGRAM, QD (400MG NOCTE )
     Route: 048
     Dates: start: 20120308
  2. CLOZARIL [Suspect]
     Active Substance: CLOZAPINE
     Dosage: 25 MILLIGRAM, QD (LOW DOSE OF 25MG DAILY)
     Route: 065
     Dates: end: 20230211
  3. VALPROATE SODIUM [Concomitant]
     Active Substance: VALPROATE SODIUM
     Dosage: 500 MILLIGRAM, BID
     Route: 065
  4. OXYBUTYNIN [Concomitant]
     Active Substance: OXYBUTYNIN
     Dosage: 500 MILLIGRAM, QD (500MG NOCTE)
     Route: 065

REACTIONS (7)
  - Emphysema [Unknown]
  - Troponin T increased [Recovered/Resolved]
  - Sepsis [Recovered/Resolved]
  - Myocarditis [Unknown]
  - Seizure [Unknown]
  - Antipsychotic drug level increased [Recovered/Resolved]
  - Therapy cessation [Unknown]

NARRATIVE: CASE EVENT DATE: 20230202
